FAERS Safety Report 24588623 (Version 1)
Quarter: 2024Q4

REPORT INFORMATION
  Report Type: Spontaneous
  Country: CA (occurrence: CA)
  Receive Date: 20241107
  Receipt Date: 20241107
  Transmission Date: 20250114
  Serious: Yes (Hospitalization)
  Sender: STASON PHARMACEUTICALS, INC.
  Company Number: CA-Stason Pharmaceuticals, Inc.-2164621

PATIENT
  Age: 6 Year

DRUGS (1)
  1. MERCAPTOPURINE [Suspect]
     Active Substance: MERCAPTOPURINE

REACTIONS (4)
  - Febrile neutropenia [Unknown]
  - Herpes simplex [Unknown]
  - HCoV-HKU1 infection [Unknown]
  - Body temperature increased [Unknown]
